FAERS Safety Report 7717285-6 (Version None)
Quarter: 2011Q3

REPORT INFORMATION
  Report Type: 
  Country: None (occurrence: None)
  Receive Date: 20110818
  Receipt Date: 20110718
  Transmission Date: 20111222
  Serious: No
  Sender: FDA-Public Use
  Company Number: 1000022255

PATIENT
  Age: 45 Year
  Sex: Female

DRUGS (14)
  1. XANAX [Concomitant]
  2. VIIBRYD [Suspect]
     Indication: DEPRESSION
     Dosage: 10 MG (10 MG, 1 IN 1 D), ORAL, 20 MG (20 MG, 1 IN 1 D), ORAL
     Route: 048
     Dates: start: 20110714
  3. VIIBRYD [Suspect]
     Indication: DEPRESSION
     Dosage: 10 MG (10 MG, 1 IN 1 D), ORAL, 20 MG (20 MG, 1 IN 1 D), ORAL
     Route: 048
     Dates: start: 20110706, end: 20110713
  4. LORCET (VICODIN) (VICODIN) [Concomitant]
  5. SINGULAIR (MONTELUKAST) (MONTELUKAST) [Concomitant]
  6. ESTRADIOL [Concomitant]
  7. SAPHRIS [Suspect]
     Indication: INSOMNIA
     Dosage: 10 MG (10 MG, 1 IN 1 D), ORAL
     Route: 048
  8. SAVELLA (MILNACIPRAN HYDROCHLORIDE) (MILNACIPRAN HYDROCHLORIDE) [Concomitant]
  9. TOPAMAX (TOPIRAMATE) (TOPIRAMATE) [Concomitant]
  10. SYMBICORT (BUDESONIDE W/FORMOTEROL FUMRATE) (BUDESONIDE W/FORMOTEROL F [Concomitant]
  11. COMBIVENT (ALBUTEROL, IPRATROPIUM) (ALBUTEROL, IPRATROPIUM) [Concomitant]
  12. OMEPRAZOLE [Concomitant]
  13. KLONOPIN (CLONAZEPAM) (CLONAZEPAM) [Concomitant]
  14. METHOCARBAMOL (METHOCARBAMOL) (METHOCARBAMOL) [Concomitant]

REACTIONS (2)
  - HOT FLUSH [None]
  - HYPERHIDROSIS [None]
